FAERS Safety Report 6334924-5 (Version None)
Quarter: 2009Q3

REPORT INFORMATION
  Report Type: 
  Country: None (occurrence: None)
  Receive Date: 20090831
  Receipt Date: 20090819
  Transmission Date: 20100115
  Serious: Yes (Hospitalization, Other)
  Sender: FDA-Public Use
  Company Number: US-AVENTIS-200916180US

PATIENT
  Sex: Female
  Weight: 83.5 kg

DRUGS (15)
  1. LANTUS [Suspect]
     Route: 058
  2. HUMALOG [Concomitant]
     Dosage: DOSE: SLIDING SCALE
  3. PLAVIX [Concomitant]
     Dosage: DOSE: UNK
  4. COREG [Concomitant]
     Dosage: DOSE QUANTITY: 2.5
  5. LASIX [Concomitant]
     Dosage: DOSE QUANTITY: 20
  6. CHOLESTEROL- AND TRIGLYCERIDE REDUCERS [Concomitant]
     Dosage: DOSE: UNK
  7. CLONIDINE [Concomitant]
     Dosage: DOSE: UNK
  8. DIOVANE [Concomitant]
     Dosage: DOSE QUANTITY: 320
  9. ZOCOR [Concomitant]
     Dosage: DOSE QUANTITY: 40
  10. TYLENOL (CAPLET) [Concomitant]
     Dosage: DOSE: UNK
  11. ASPIRIN [Concomitant]
     Dosage: DOSE: UNK
  12. LOVENOX [Concomitant]
     Dosage: DOSE: UNK
  13. INTEGRILIN [Concomitant]
     Dosage: DOSE: UNK
  14. VALIUM [Concomitant]
  15. BENADRYL [Concomitant]

REACTIONS (4)
  - BLOOD GLUCOSE INCREASED [None]
  - MYOCARDIAL INFARCTION [None]
  - RENAL IMPAIRMENT [None]
  - VASCULAR PSEUDOANEURYSM [None]
